FAERS Safety Report 4334957-4 (Version None)
Quarter: 2004Q2

REPORT INFORMATION
  Report Type: 
  Country: None (occurrence: None)
  Receive Date: 20040405
  Receipt Date: 20040319
  Transmission Date: 20050107
  Serious: Yes (Hospitalization)
  Sender: FDA-Public Use
  Company Number: DSA_24124_2004

PATIENT
  Age: 41 Year
  Sex: Male

DRUGS (5)
  1. LORAZEPAM [Suspect]
     Dosage: 25 MG ONCE PO
     Route: 048
     Dates: start: 20040315, end: 20040315
  2. LORAZEPAM [Suspect]
     Dosage: 25 MG ONCE SL
     Route: 060
     Dates: start: 20040315, end: 20040315
  3. DOMINAL FORTE [Suspect]
     Dosage: 2000 MG ONCE PO
     Route: 048
     Dates: start: 20040315, end: 20040315
  4. ETHANOL [Suspect]
     Dosage: 1 L ONCE PO
     Route: 048
     Dates: start: 20040315, end: 20040315
  5. RISPERDAL [Suspect]
     Dosage: 20 MG ONCE PO
     Route: 048
     Dates: start: 20040315, end: 20040315

REACTIONS (6)
  - BOWEL SOUNDS ABNORMAL [None]
  - DIARRHOEA [None]
  - DYSARTHRIA [None]
  - INTENTIONAL OVERDOSE [None]
  - SINUS TACHYCARDIA [None]
  - SOMNOLENCE [None]
